FAERS Safety Report 6484686-6 (Version None)
Quarter: 2009Q4

REPORT INFORMATION
  Report Type: 
  Country: None (occurrence: None)
  Receive Date: 20091209
  Receipt Date: 20091201
  Transmission Date: 20100525
  Serious: Yes (Other)
  Sender: FDA-Public Use
  Company Number: GB-PFIZER INC-2009179635

PATIENT
  Age: 37 Year
  Sex: Female
  Weight: 57 kg

DRUGS (2)
  1. CHAMPIX [Suspect]
     Indication: SMOKING CESSATION THERAPY
     Dosage: 1 MG, 2X/DAY
     Route: 048
     Dates: start: 20080714, end: 20080723
  2. MICRONOR [Concomitant]
     Indication: CONTRACEPTION
     Dosage: 350 MG, UNK
     Route: 048
     Dates: start: 20080207

REACTIONS (5)
  - ABORTION INDUCED [None]
  - DRUG EXPOSURE DURING PREGNANCY [None]
  - PREGNANCY ON CONTRACEPTIVE [None]
  - TREATMENT NONCOMPLIANCE [None]
  - UNINTENDED PREGNANCY [None]
